FAERS Safety Report 8660672 (Version 3)
Quarter: 2013Q3

REPORT INFORMATION
  Report Type: Spontaneous
  Country: CH (occurrence: CH)
  Receive Date: 20120711
  Receipt Date: 20130927
  Transmission Date: 20140515
  Serious: Yes (Hospitalization)
  Sender: FDA-Public Use
  Company Number: CH-ELI_LILLY_AND_COMPANY-CH201207001971

PATIENT
  Age: 52 Year
  Sex: Male
  Weight: 75 kg

DRUGS (3)
  1. EFIENT [Suspect]
     Indication: STENT PLACEMENT
     Dosage: 60 MG, QD
     Route: 048
     Dates: start: 20110819, end: 20110819
  2. EFIENT [Suspect]
     Dosage: 10 MG, QD
     Route: 048
     Dates: start: 20110820
  3. ASPIRIN [Concomitant]

REACTIONS (3)
  - Coronary artery restenosis [Recovering/Resolving]
  - Angina pectoris [Recovering/Resolving]
  - Device occlusion [Recovering/Resolving]
